FAERS Safety Report 16987858 (Version 3)
Quarter: 2019Q4

REPORT INFORMATION
  Report Type: Spontaneous
  Country: US (occurrence: US)
  Receive Date: 20191104
  Receipt Date: 20191231
  Transmission Date: 20200122
  Serious: Yes (Other)
  Sender: FDA-Public Use
  Company Number: US-009507513-1910USA014525

PATIENT
  Age: 22 Year
  Sex: Female
  Weight: 148.9 kg

DRUGS (7)
  1. ESCITALOPRAM [Concomitant]
     Active Substance: ESCITALOPRAM OXALATE
     Dosage: 20 MG PO DAILY
     Route: 048
     Dates: start: 20190724
  2. NEXPLANON [Suspect]
     Active Substance: ETONOGESTREL
     Indication: CONTRACEPTION
     Dosage: ONE IMPLANT IN LEFT BICEP AREA (LEFT ARM), FREQUENCY REPORTED AS CONTINOUS
     Route: 059
     Dates: start: 20190911, end: 20191013
  3. DESOGESTREL (+) ETHINYL ESTRADIOL [Concomitant]
     Active Substance: DESOGESTREL\ETHINYL ESTRADIOL
     Dosage: 0.15/0.3 MG, 1 TAB PO DAILY
     Route: 048
     Dates: start: 20190408
  4. ASCORBIC ACID (+) BIOTIN (+) VITAMIN E ACETATE [Concomitant]
     Dosage: 1 EA PO DAILY
     Route: 048
     Dates: start: 20180116
  5. LEXAPRO [Concomitant]
     Active Substance: ESCITALOPRAM OXALATE
     Dosage: 20 MG, QD
     Route: 048
  6. OMEPRAZOLE. [Concomitant]
     Active Substance: OMEPRAZOLE
     Dosage: 40 MG PO DAILY
     Route: 048
     Dates: start: 20180116
  7. CHOLECALCIFEROL [Concomitant]
     Active Substance: CHOLECALCIFEROL
     Dosage: 2000 UNITS QD, 1 CAP PO DAILY
     Route: 048
     Dates: start: 20180116

REACTIONS (14)
  - Wound infection [Recovered/Resolved]
  - Skin wound [Recovered/Resolved]
  - Impaired fasting glucose [Unknown]
  - Fatigue [Unknown]
  - Depressed mood [Unknown]
  - Hidradenitis [Unknown]
  - Decreased interest [Unknown]
  - Initial insomnia [Unknown]
  - Hypersensitivity [Recovered/Resolved]
  - Device expulsion [Recovered/Resolved]
  - Poor quality sleep [Unknown]
  - Implant site ulcer [Recovered/Resolved]
  - Hypertension [Unknown]
  - Implant site vesicles [Recovered/Resolved]

NARRATIVE: CASE EVENT DATE: 2019
